FAERS Safety Report 9805939 (Version 1)
Quarter: 2014Q1

REPORT INFORMATION
  Report Type: Spontaneous
  Country: US (occurrence: None)
  Receive Date: 20140108
  Receipt Date: 20140108
  Transmission Date: 20141002
  Serious: Yes (Hospitalization)
  Sender: FDA-Public Use
  Company Number: None

PATIENT
  Age: 41 Year
  Sex: Male
  Weight: 95.9 kg

DRUGS (2)
  1. SULFAMETHOXAZOLE/TRIMETHOPRIM [Suspect]
     Indication: SURGERY
     Dosage: 1 TAB
     Route: 048
     Dates: start: 20130726, end: 20130802
  2. CIPROFLOXACIN [Suspect]
     Route: 048
     Dates: start: 20130726, end: 20130802

REACTIONS (3)
  - Angioedema [None]
  - Erythema multiforme [None]
  - Rash [None]
